FAERS Safety Report 9515737 (Version 3)
Quarter: 2013Q4

REPORT INFORMATION
  Report Type: Spontaneous
  Country: FR (occurrence: FR)
  Receive Date: 20130911
  Receipt Date: 20131011
  Transmission Date: 20140711
  Serious: Yes (Hospitalization)
  Sender: FDA-Public Use
  Company Number: FR-PFIZER INC-2013257834

PATIENT
  Age: 74 Year
  Sex: Female

DRUGS (6)
  1. FRAGMINE [Suspect]
     Dosage: 5000 IU, DAILY
     Route: 058
     Dates: start: 20130616, end: 20130624
  2. LYRICA [Suspect]
     Indication: SCIATICA
     Dosage: 25 MG, 2X/DAY
     Route: 048
     Dates: start: 20130618, end: 20130625
  3. SKENAN [Suspect]
     Indication: SCIATICA
     Dosage: 10 MG, 2X/DAY
     Route: 048
     Dates: start: 20130619, end: 20130625
  4. OROCAL [Suspect]
     Dosage: 500 MG, 1X/DAY
     Route: 048
     Dates: start: 20130621, end: 20130623
  5. LACTULOSE [Suspect]
     Dosage: 1 DF, 1X/DAY
     Route: 048
     Dates: start: 20130620, end: 20130624
  6. DOLIPRANE [Concomitant]
     Dosage: 1000 MG, 3X/DAY
     Route: 048
     Dates: start: 20130608

REACTIONS (1)
  - Cholestasis [Recovered/Resolved]
